FAERS Safety Report 7810377-2 (Version None)
Quarter: 2011Q4

REPORT INFORMATION
  Report Type: 
  Country: None (occurrence: None)
  Receive Date: 20111012
  Receipt Date: 20110928
  Transmission Date: 20120403
  Serious: Yes (Other)
  Sender: FDA-Public Use
  Company Number: FR-ROCHE-1000890

PATIENT
  Sex: Female

DRUGS (11)
  1. AVASTIN [Suspect]
     Indication: BREAST CANCER
     Dates: start: 20101229
  2. PREDNISONE [Concomitant]
  3. PACLITAXEL [Suspect]
     Indication: BREAST CANCER
     Dates: start: 20101229
  4. OMEPRAZOLE [Concomitant]
     Dosage: 1/DAY
  5. SPECIAFOLDINE [Concomitant]
  6. POTASSIUM CHLORIDE [Concomitant]
  7. MORPHINE SULFATE [Concomitant]
     Dosage: 2/DAY
  8. MORPHINE SULFATE [Concomitant]
  9. KEPPRA [Concomitant]
  10. XANAX [Concomitant]
     Dosage: 0.5 IF NEEDED
  11. XELODA [Suspect]
     Indication: BREAST CANCER
     Dates: start: 20101229

REACTIONS (1)
  - RETINAL ARTERY OCCLUSION [None]
